FAERS Safety Report 13982601 (Version 1)
Quarter: 2017Q3

REPORT INFORMATION
  Report Type: Spontaneous
  Country: US (occurrence: US)
  Receive Date: 20170918
  Receipt Date: 20170918
  Transmission Date: 20171128
  Serious: No
  Sender: FDA-Public Use
  Company Number: US-LEADIANT BIOSCIENCES INC-2016STPI000677

PATIENT
  Age: 36 Year

DRUGS (7)
  1. MATULANE [Suspect]
     Active Substance: PROCARBAZINE HYDROCHLORIDE
     Indication: BRAIN NEOPLASM
     Dosage: 100 MG QD X 12 DAYS
     Route: 048
     Dates: start: 20160408
  2. TECFIDERA [Concomitant]
     Active Substance: DIMETHYL FUMARATE
  3. VITAMIN D                          /00107901/ [Concomitant]
     Active Substance: ERGOCALCIFEROL
  4. DEXTROMETHORPHAN [Concomitant]
     Active Substance: DEXTROMETHORPHAN
  5. MATULANE [Suspect]
     Active Substance: PROCARBAZINE HYDROCHLORIDE
     Dosage: 150 MG QD X 2 DAYS
     Route: 048
     Dates: start: 201604
  6. MIRENA [Concomitant]
     Active Substance: LEVONORGESTREL
  7. PRILOSEC [Concomitant]
     Active Substance: OMEPRAZOLE MAGNESIUM

REACTIONS (1)
  - Hypersensitivity [Unknown]

NARRATIVE: CASE EVENT DATE: 201608
